FAERS Safety Report 6552986-7 (Version None)
Quarter: 2010Q1

REPORT INFORMATION
  Report Type: 
  Country: None (occurrence: None)
  Receive Date: 20100127
  Receipt Date: 20100119
  Transmission Date: 20100710
  Serious: Yes (Hospitalization, Other)
  Sender: FDA-Public Use
  Company Number: FR-BIOGENIDEC-2010BI002229

PATIENT
  Age: 23 Year
  Sex: Female

DRUGS (9)
  1. TYSABRI [Suspect]
     Indication: MULTIPLE SCLEROSIS
     Route: 042
     Dates: start: 20081201
  2. MUSCLE RELAXANTS (NOS) [Concomitant]
  3. NSAIDS (NOS) [Concomitant]
  4. GASTRIC ANTI-SECRETION AGENT (NOS) [Concomitant]
  5. ANXIOLYTIC (NOS) [Concomitant]
  6. LAXATIVE (NOS) [Concomitant]
  7. ALPHA BLOCKER (NOS) [Concomitant]
  8. ANTI-EPILEPTIC (NOS) [Concomitant]
  9. NEURONTIN [Concomitant]
     Indication: EPILEPSY

REACTIONS (6)
  - BLINDNESS [None]
  - CHLAMYDIAL INFECTION [None]
  - LUNG DISORDER [None]
  - OPTIC ATROPHY [None]
  - SPLENIC INFARCTION [None]
  - SYNCOPE [None]
